FAERS Safety Report 4420865-7 (Version None)
Quarter: 2004Q3

REPORT INFORMATION
  Report Type: 
  Country: None (occurrence: None)
  Receive Date: 20040809
  Receipt Date: 20040729
  Transmission Date: 20050211
  Serious: Yes (Other)
  Sender: FDA-Public Use
  Company Number: FR-BRISTOL-MYERS SQUIBB COMPANY-12656872

PATIENT
  Age: 44 Year
  Sex: Male

DRUGS (3)
  1. REYATAZ [Suspect]
     Indication: HIV INFECTION
     Route: 048
     Dates: start: 20040601
  2. NORVIR [Concomitant]
     Indication: HIV INFECTION
  3. TRIZIVIR [Concomitant]
     Indication: HIV INFECTION

REACTIONS (1)
  - PSYCHOTIC DISORDER [None]
